FAERS Safety Report 14473223 (Version 1)
Quarter: 2018Q1

REPORT INFORMATION
  Report Type: Spontaneous
  Country: CA (occurrence: CA)
  Receive Date: 20180201
  Receipt Date: 20180201
  Transmission Date: 20180509
  Serious: Yes (Other)
  Sender: FDA-Public Use
  Company Number: CA-CONCORDIA PHARMACEUTICALS INC.-GSH201801-000398

PATIENT
  Sex: Female

DRUGS (9)
  1. SODIUM AUROTHIOMALATE [Suspect]
     Active Substance: GOLD SODIUM THIOMALATE
     Indication: PRODUCT USED FOR UNKNOWN INDICATION
     Route: 051
  2. ORENCIA [Concomitant]
     Active Substance: ABATACEPT
  3. ENBREL [Concomitant]
     Active Substance: ETANERCEPT
     Indication: RHEUMATOID ARTHRITIS
     Dates: end: 201611
  4. METHOTREXATE. [Concomitant]
     Active Substance: METHOTREXATE
     Indication: RHEUMATOID ARTHRITIS
     Dates: end: 201711
  5. SIMPONI [Concomitant]
     Active Substance: GOLIMUMAB
  6. LEFLUNOMIDE. [Concomitant]
     Active Substance: LEFLUNOMIDE
  7. PLAQUENIL [Suspect]
     Active Substance: HYDROXYCHLOROQUINE SULFATE
     Indication: RHEUMATOID ARTHRITIS
     Route: 048
  8. MELOXICAM. [Concomitant]
     Active Substance: MELOXICAM
  9. SULFASALAZINE. [Concomitant]
     Active Substance: SULFASALAZINE
     Indication: RHEUMATOID ARTHRITIS

REACTIONS (7)
  - Seasonal allergy [Unknown]
  - Localised infection [Unknown]
  - Hepatitis C virus test positive [Recovered/Resolved]
  - Rheumatoid arthritis [Unknown]
  - Malaise [Unknown]
  - Oropharyngeal pain [Unknown]
  - Cystitis [Unknown]
